FAERS Safety Report 4352234-2 (Version None)
Quarter: 2004Q2

REPORT INFORMATION
  Report Type: 
  Country: None (occurrence: None)
  Receive Date: 20040504
  Receipt Date: 20040422
  Transmission Date: 20050107
  Serious: Yes (Hospitalization)
  Sender: FDA-Public Use
  Company Number: FR-BRISTOL-MYERS SQUIBB COMPANY-12567350

PATIENT
  Age: 29 Year
  Sex: Male

DRUGS (3)
  1. BLEOMYCIN [Suspect]
     Indication: TESTIS CANCER
     Route: 042
     Dates: start: 20040301
  2. CISPLATIN [Concomitant]
     Indication: TESTIS CANCER
     Route: 042
     Dates: start: 20040301
  3. VEPESID [Concomitant]
     Indication: TESTIS CANCER
     Route: 042
     Dates: start: 20040301, end: 20040301

REACTIONS (3)
  - ERYTHEMA [None]
  - OEDEMA PERIPHERAL [None]
  - PYREXIA [None]
